FAERS Safety Report 6997090-9 (Version None)
Quarter: 2010Q3

REPORT INFORMATION
  Report Type: 
  Country: None (occurrence: None)
  Receive Date: 20100918
  Receipt Date: 20090902
  Transmission Date: 20110219
  Serious: No
  Sender: FDA-Public Use
  Company Number: US-WYE-H10833209

PATIENT
  Sex: Female

DRUGS (5)
  1. PRISTIQ [Suspect]
     Route: 048
     Dates: start: 20090101, end: 20090701
  2. PRISTIQ [Suspect]
     Route: 048
     Dates: start: 20090701, end: 20090701
  3. PRISTIQ [Suspect]
     Route: 048
     Dates: start: 20090701, end: 20090801
  4. PRISTIQ [Suspect]
     Dosage: ^STARTED TO TAKE MORE FREQUENTLY^
     Route: 048
     Dates: start: 20090801, end: 20090901
  5. PRISTIQ [Suspect]
     Dosage: ^STARTED TO TAPER OFF AGAIN^
     Route: 048
     Dates: start: 20090901

REACTIONS (3)
  - DIZZINESS [None]
  - DRUG WITHDRAWAL SYNDROME [None]
  - NAUSEA [None]
